FAERS Safety Report 8285790 (Version 41)
Quarter: 2019Q1

REPORT INFORMATION
  Report Type: Report from Study
  Country: CA (occurrence: CA)
  Receive Date: 20111213
  Receipt Date: 20190207
  Transmission Date: 20190418
  Serious: Yes (Hospitalization, Other)
  Sender: FDA-Public Use
  Company Number: PHHY2011CA106286

PATIENT
  Age: 58 Year
  Sex: Male

DRUGS (9)
  1. SANDOSTATIN LAR DEPOT [Suspect]
     Active Substance: OCTREOTIDE ACETATE
     Dosage: 30 MG, QMO (EVERY 4 WEEKS)
     Route: 030
     Dates: start: 20151216
  2. SANDOSTATIN LAR DEPOT [Suspect]
     Active Substance: OCTREOTIDE ACETATE
     Dosage: 30 MG, QMO EVERY 4 WEEKS
     Route: 030
     Dates: start: 20131220
  3. SANDOSTATIN LAR DEPOT [Suspect]
     Active Substance: OCTREOTIDE ACETATE
     Dosage: 30 MG, QMO
     Route: 030
  4. LAX-A-DAY [Concomitant]
     Indication: PRODUCT USED FOR UNKNOWN INDICATION
     Dosage: 17 G, QD
     Route: 048
  5. AFINITOR [Suspect]
     Active Substance: EVEROLIMUS
     Indication: PANCREATIC NEUROENDOCRINE TUMOUR
     Dosage: 10 MG, QD, STOPPED IN 2014
     Route: 048
     Dates: start: 20140923, end: 2014
  6. OXYCODONE [Concomitant]
     Active Substance: OXYCODONE
     Indication: PRODUCT USED FOR UNKNOWN INDICATION
     Dosage: 5 MG, PRN (1 TAB Q 3 HRS PRN)
     Route: 048
  7. SUTENT [Concomitant]
     Active Substance: SUNITINIB MALATE
     Indication: PRODUCT USED FOR UNKNOWN INDICATION
     Dosage: 25 MG, QD
     Route: 048
  8. ZOLOFT [Concomitant]
     Active Substance: SERTRALINE HYDROCHLORIDE
     Indication: PRODUCT USED FOR UNKNOWN INDICATION
     Dosage: 75 MG, QD
     Route: 048
  9. SANDOSTATIN LAR DEPOT [Suspect]
     Active Substance: OCTREOTIDE ACETATE
     Indication: PANCREATIC NEUROENDOCRINE TUMOUR
     Dosage: 30 MG, QMO (ONCE A MONTH)
     Route: 030
     Dates: start: 20111129

REACTIONS (39)
  - Food poisoning [Recovering/Resolving]
  - Bone pain [Unknown]
  - Faeces discoloured [Unknown]
  - Asthenia [Unknown]
  - Injection site pain [Recovered/Resolved]
  - Metastases to bone [Unknown]
  - Diabetes mellitus [Unknown]
  - Abdominal pain upper [Unknown]
  - Memory impairment [Unknown]
  - Fatigue [Unknown]
  - Diarrhoea [Unknown]
  - Pain [Recovering/Resolving]
  - Blood pressure increased [Unknown]
  - Vomiting [Unknown]
  - Pleurisy [Unknown]
  - Photophobia [Unknown]
  - White blood cell count decreased [Unknown]
  - Chest pain [Not Recovered/Not Resolved]
  - Pain in extremity [Unknown]
  - Muscular weakness [Unknown]
  - Hypothyroidism [Unknown]
  - Night sweats [Unknown]
  - Metastases to liver [Unknown]
  - Abdominal pain upper [Recovered/Resolved]
  - Tension [Unknown]
  - Decreased appetite [Unknown]
  - Feeling abnormal [Unknown]
  - Gait disturbance [Unknown]
  - Body temperature decreased [Unknown]
  - Malaise [Unknown]
  - Headache [Unknown]
  - Hepatic pain [Unknown]
  - Pyrexia [Recovering/Resolving]
  - Abdominal pain [Recovered/Resolved]
  - Pancreatic neuroendocrine tumour [Unknown]
  - Malignant neoplasm progression [Unknown]
  - Weight decreased [Unknown]
  - Blood cholesterol increased [Unknown]
  - Musculoskeletal pain [Not Recovered/Not Resolved]

NARRATIVE: CASE EVENT DATE: 2014
